FAERS Safety Report 19620638 (Version 6)
Quarter: 2021Q3

REPORT INFORMATION
  Report Type: Spontaneous
  Country: US (occurrence: US)
  Receive Date: 20210728
  Receipt Date: 20210925
  Transmission Date: 20211014
  Serious: Yes (Other)
  Sender: FDA-Public Use
  Company Number: US-UNITED THERAPEUTICS-UNT-2021-013720

PATIENT
  Age: 70 Year
  Sex: Female
  Weight: 85.71 kg

DRUGS (11)
  1. REMODULIN [Suspect]
     Active Substance: TREPROSTINIL
     Dosage: 0.024 ?G/KG, CONTINUING
     Route: 058
     Dates: start: 2021
  2. SILDENAFIL. [Suspect]
     Active Substance: SILDENAFIL
     Indication: PRODUCT USED FOR UNKNOWN INDICATION
     Dosage: UNK
     Route: 065
     Dates: start: 202107, end: 20210716
  3. ELIQUIS [Concomitant]
     Active Substance: APIXABAN
     Indication: PRODUCT USED FOR UNKNOWN INDICATION
     Dosage: UNK
     Route: 065
  4. REMODULIN [Suspect]
     Active Substance: TREPROSTINIL
     Dosage: 0.01 ?G/KG, CONTINUING
     Route: 058
     Dates: start: 2021
  5. REMODULIN [Suspect]
     Active Substance: TREPROSTINIL
     Dosage: 0.014 ?G/KG, CONTINUING
     Route: 058
     Dates: start: 20210716
  6. REMODULIN [Suspect]
     Active Substance: TREPROSTINIL
     Indication: PULMONARY ARTERIAL HYPERTENSION
     Dosage: UNK, CONTINUING
     Route: 058
     Dates: start: 20210630
  7. OPSUMIT [Suspect]
     Active Substance: MACITENTAN
     Indication: PULMONARY ARTERIAL HYPERTENSION
     Dosage: 10 MG, QD (1 TIME EVERY 1 DAY)
     Route: 048
  8. OXYGEN. [Suspect]
     Active Substance: OXYGEN
     Indication: PRODUCT USED FOR UNKNOWN INDICATION
     Dosage: UNK
     Route: 065
  9. ADEMPAS [Concomitant]
     Active Substance: RIOCIGUAT
     Indication: PRODUCT USED FOR UNKNOWN INDICATION
     Route: 065
  10. REMODULIN [Suspect]
     Active Substance: TREPROSTINIL
     Dosage: 0.012 ?G/KG, CONTINUING
     Route: 058
     Dates: start: 202107
  11. TADALAFIL. [Concomitant]
     Active Substance: TADALAFIL
     Indication: PRODUCT USED FOR UNKNOWN INDICATION
     Dosage: UNK
     Route: 065

REACTIONS (9)
  - Hypoxia [Recovering/Resolving]
  - Chest pain [Not Recovered/Not Resolved]
  - Oedema peripheral [Recovered/Resolved]
  - Cardiac failure [Unknown]
  - Hypotension [Unknown]
  - Epistaxis [Unknown]
  - Oxygen saturation decreased [Recovering/Resolving]
  - Respiratory failure [Unknown]
  - Dyspnoea [Recovered/Resolved]

NARRATIVE: CASE EVENT DATE: 2021
